FAERS Safety Report 9904407 (Version 1)
Quarter: 2014Q1

REPORT INFORMATION
  Report Type: Spontaneous
  Country: US (occurrence: US)
  Receive Date: 20140218
  Receipt Date: 20140218
  Transmission Date: 20141002
  Serious: Yes (Hospitalization)
  Sender: FDA-Public Use
  Company Number: US-SA-2014SA017522

PATIENT
  Sex: Female
  Weight: 135 kg

DRUGS (1)
  1. FABRAZYME [Suspect]
     Indication: FABRY^S DISEASE
     Route: 042

REACTIONS (4)
  - Staphylococcal infection [Unknown]
  - Nasopharyngitis [Unknown]
  - Back pain [Unknown]
  - Pain [Unknown]
